FAERS Safety Report 8376855-5 (Version None)
Quarter: 2012Q2

REPORT INFORMATION
  Report Type: 
  Country: None (occurrence: None)
  Receive Date: 20120522
  Receipt Date: 20120509
  Transmission Date: 20120825
  Serious: Yes (Hospitalization, Other)
  Sender: FDA-Public Use
  Company Number: US-JNJFOC-20120510498

PATIENT
  Sex: Female
  Weight: 87.09 kg

DRUGS (16)
  1. REMICADE [Suspect]
     Indication: ARTHRITIS
     Route: 042
     Dates: start: 20111116, end: 20111228
  2. REMICADE [Suspect]
     Indication: CROHN'S DISEASE
     Route: 042
     Dates: start: 20111116, end: 20111228
  3. SIMVASTATIN [Concomitant]
     Indication: BLOOD PRESSURE
     Route: 048
  4. LORATADINE [Concomitant]
     Indication: PRODUCT USED FOR UNKNOWN INDICATION
     Route: 048
  5. DIAZEPAM [Concomitant]
     Indication: ANXIETY
     Route: 048
  6. PROMETHAZINE [Concomitant]
     Indication: NAUSEA
     Route: 048
  7. ADVAIR DISKUS 100/50 [Concomitant]
     Indication: ASTHMA
     Dosage: 500/50/SOLUTION/ONCE A DAY/INHALATION
     Route: 055
  8. CALCIUM CARBONATE [Concomitant]
     Indication: GASTROOESOPHAGEAL REFLUX DISEASE
     Route: 048
  9. OMEPRAZOLE [Concomitant]
     Route: 048
  10. ALL OTHER THERAPEUTIC PRODUCTS [Concomitant]
     Indication: ABNORMAL FAECES
     Route: 048
  11. ZOLPIDEM [Concomitant]
     Indication: SLEEP DISORDER
     Route: 048
  12. MIRALAX [Concomitant]
     Indication: ABNORMAL FAECES
     Dosage: 1 TSB/POWDER ONCE A DAY
     Route: 048
  13. POTASSIUM CHLORIDE [Concomitant]
     Route: 048
  14. CYMBALTA [Concomitant]
     Indication: ARTHRITIS
     Route: 048
     Dates: start: 20110901
  15. TUSSIONEX [Concomitant]
     Indication: PRODUCT USED FOR UNKNOWN INDICATION
     Route: 048
  16. NITROFURANTOIN [Concomitant]
     Indication: PRODUCT USED FOR UNKNOWN INDICATION
     Route: 048

REACTIONS (14)
  - FEELING ABNORMAL [None]
  - DRY MOUTH [None]
  - TUBERCULOSIS [None]
  - DYSPNOEA [None]
  - GAIT DISTURBANCE [None]
  - ARTHRALGIA [None]
  - DYSARTHRIA [None]
  - HYPERHIDROSIS [None]
  - MIGRAINE [None]
  - DIZZINESS [None]
  - PAIN [None]
  - INCREASED TENDENCY TO BRUISE [None]
  - FALL [None]
  - OEDEMA PERIPHERAL [None]
